FAERS Safety Report 24129593 (Version 1)
Quarter: 2024Q3

REPORT INFORMATION
  Report Type: Spontaneous
  Country: US (occurrence: US)
  Receive Date: 20240724
  Receipt Date: 20240724
  Transmission Date: 20241016
  Serious: Yes (Death, Hospitalization)
  Sender: DENDREON
  Company Number: US-DENDREON PHARMACEUTICAL LLC-2024DEN000184

PATIENT

DRUGS (6)
  1. PROVENGE [Suspect]
     Active Substance: SIPULEUCEL-T
     Indication: Prostate cancer metastatic
     Dosage: DOSE 1
     Route: 042
     Dates: start: 20240627, end: 20240627
  2. PROVENGE [Suspect]
     Active Substance: SIPULEUCEL-T
     Dosage: DOSE 2
     Route: 042
     Dates: start: 20240711, end: 20240711
  3. ABIRATERONE ACETATE [Concomitant]
     Active Substance: ABIRATERONE ACETATE
     Indication: Prostate cancer metastatic
     Dosage: 1000 MILLIGRAM, QD
  4. PREDNISONE [Concomitant]
     Active Substance: PREDNISONE
     Indication: Prostate cancer metastatic
     Dosage: 5 MILLIGRAM, BID
  5. TRELSTAR [Suspect]
     Active Substance: TRIPTORELIN PAMOATE
     Indication: Prostate cancer metastatic
  6. ASPIRIN [Suspect]
     Active Substance: ASPIRIN

REACTIONS (2)
  - Infusion related reaction [Recovered/Resolved]
  - Cardiac arrest [Fatal]

NARRATIVE: CASE EVENT DATE: 20240711
